FAERS Safety Report 4694238-6 (Version None)
Quarter: 2005Q2

REPORT INFORMATION
  Report Type: 
  Country: None (occurrence: None)
  Receive Date: 20050617
  Receipt Date: 20050617
  Transmission Date: 20051028
  Serious: No
  Sender: FDA-Public Use
  Company Number: None

PATIENT
  Sex: Female
  Weight: 101 kg

DRUGS (4)
  1. GEMZAR [Suspect]
     Indication: LIPOSARCOMA
     Dosage: 1926       IV    INTRAVENOU
     Route: 042
     Dates: start: 20050609, end: 20050609
  2. DURAGESIC-100 [Concomitant]
  3. NEURONTIN [Concomitant]
  4. COMPAZINE [Concomitant]

REACTIONS (9)
  - BLOOD DISORDER [None]
  - FLANK PAIN [None]
  - INFECTION [None]
  - INFLAMMATION [None]
  - MASS [None]
  - NAUSEA [None]
  - PYREXIA [None]
  - SOFT TISSUE DISORDER [None]
  - VOMITING [None]
